FAERS Safety Report 11746551 (Version 1)
Quarter: 2015Q4

REPORT INFORMATION
  Report Type: Spontaneous
  Country: US (occurrence: None)
  Receive Date: 20151116
  Receipt Date: 20151116
  Transmission Date: 20160304
  Serious: No
  Sender: FDA-Public Use
  Company Number: None

PATIENT
  Age: 26 Year
  Sex: Male
  Weight: 72.58 kg

DRUGS (7)
  1. RISPERDAL [Suspect]
     Active Substance: RISPERIDONE
     Dosage: 4 MG/ 2 PILLS  BID  ORAL
     Route: 048
     Dates: start: 20151018, end: 20151019
  2. XANAX [Concomitant]
     Active Substance: ALPRAZOLAM
  3. SEROQUEL [Concomitant]
     Active Substance: QUETIAPINE FUMARATE
  4. TYLENOL [Concomitant]
     Active Substance: ACETAMINOPHEN
  5. MAALOX ANTACID [Concomitant]
     Active Substance: ALUMINUM HYDROXIDE\DIMETHICONE\MAGNESIUM HYDROXIDE
  6. COGENTIN [Concomitant]
     Active Substance: BENZTROPINE MESYLATE
  7. COREG [Concomitant]
     Active Substance: CARVEDILOL

REACTIONS (1)
  - Restlessness [None]

NARRATIVE: CASE EVENT DATE: 20151009
